FAERS Safety Report 8374717-0 (Version None)
Quarter: 2012Q2

REPORT INFORMATION
  Report Type: 
  Country: None (occurrence: None)
  Receive Date: 20120521
  Receipt Date: 20120511
  Transmission Date: 20120825
  Serious: Yes (Other)
  Sender: FDA-Public Use
  Company Number: US-ALLERGAN-1206788US

PATIENT
  Sex: Female

DRUGS (3)
  1. BOTOX COSMETIC [Suspect]
     Indication: SKIN WRINKLING
     Dosage: UNK
     Route: 030
     Dates: start: 20120401, end: 20120401
  2. BOTOX COSMETIC [Suspect]
  3. AMINOGLYCOSIDES (UNSPECIFIED) [Concomitant]

REACTIONS (4)
  - INFLUENZA LIKE ILLNESS [None]
  - DIARRHOEA [None]
  - DYSPNOEA [None]
  - ASTHENIA [None]
